FAERS Safety Report 14146349 (Version 1)
Quarter: 2017Q4

REPORT INFORMATION
  Report Type: Spontaneous
  Country: US (occurrence: None)
  Receive Date: 20171031
  Receipt Date: 20171031
  Transmission Date: 20180321
  Serious: No
  Sender: FDA-Public Use
  Company Number: None

PATIENT
  Age: 75 Year
  Sex: Female
  Weight: 79.4 kg

DRUGS (2)
  1. BENDAMUSTINE HYDROCHLORIDE. [Suspect]
     Active Substance: BENDAMUSTINE HYDROCHLORIDE
     Dates: end: 20170521
  2. RITUXIMAB (MOAB C2B8 ANTI CD20, CHIMERIC) [Suspect]
     Active Substance: RITUXIMAB
     Dates: end: 20140520

REACTIONS (8)
  - Acute myeloid leukaemia [None]
  - Blast cells present [None]
  - Dyspnoea [None]
  - Swelling [None]
  - Chronic lymphocytic leukaemia [None]
  - Biopsy bone marrow abnormal [None]
  - Goitre [None]
  - Cell marker increased [None]

NARRATIVE: CASE EVENT DATE: 20171011
